FAERS Safety Report 8984696 (Version 2)
Quarter: 2013Q1

REPORT INFORMATION
  Report Type: Spontaneous
  Country: US (occurrence: US)
  Receive Date: 20121225
  Receipt Date: 20130215
  Transmission Date: 20140127
  Serious: No
  Sender: FDA-Public Use
  Company Number: US-JNJFOC-20121210264

PATIENT
  Sex: Female
  Weight: 138.35 kg

DRUGS (12)
  1. SANDOZ FENTANYL TRANSDERMAL SYSTEM [Suspect]
     Indication: FIBROMYALGIA
     Route: 062
     Dates: end: 2011
  2. NORCO [Concomitant]
     Indication: PAIN
     Dosage: 10 MG/325 MG/TABLET/10 MG/AS NEEDED/PO
     Route: 048
     Dates: start: 2005
  3. SINGULAIR [Concomitant]
     Indication: ASTHMA
     Route: 048
     Dates: start: 2000
  4. SINGULAIR [Concomitant]
     Indication: MULTIPLE ALLERGIES
     Route: 048
     Dates: start: 2000
  5. XANAX [Concomitant]
     Indication: ANXIETY
     Route: 048
  6. XANAX [Concomitant]
     Indication: HYPERSOMNIA
     Route: 048
  7. PREMARIN [Concomitant]
     Indication: HYSTERECTOMY
     Route: 048
     Dates: start: 1977
  8. ALEVE [Concomitant]
     Indication: PAIN
     Route: 048
  9. VITAMIN [Concomitant]
     Indication: ROUTINE HEALTH MAINTENANCE
     Route: 048
  10. VITAMIN B3 [Concomitant]
     Indication: ROUTINE HEALTH MAINTENANCE
     Route: 048
  11. FISH OIL [Concomitant]
     Indication: ROUTINE HEALTH MAINTENANCE
     Route: 048
  12. VITAMIN C [Concomitant]
     Indication: ROUTINE HEALTH MAINTENANCE
     Route: 048

REACTIONS (4)
  - Inappropriate schedule of drug administration [Recovered/Resolved]
  - Somnolence [Recovered/Resolved]
  - Drug prescribing error [Recovered/Resolved]
  - Expired drug administered [Recovered/Resolved]
